FAERS Safety Report 18066255 (Version 1)
Quarter: 2020Q3

REPORT INFORMATION
  Report Type: Spontaneous
  Country: ES (occurrence: ES)
  Receive Date: 20200724
  Receipt Date: 20200724
  Transmission Date: 20201103
  Serious: Yes (Hospitalization, Other)
  Sender: FDA-Public Use
  Company Number: ES-ACTELION-A-CH2020-207307

PATIENT
  Age: 27 Year
  Sex: Female

DRUGS (2)
  1. BOSENTAN. [Suspect]
     Active Substance: BOSENTAN
     Indication: SEGMENTED HYALINISING VASCULITIS
  2. BOSENTAN. [Suspect]
     Active Substance: BOSENTAN
     Indication: THROMBOSIS
     Dosage: 62.5 MG, BID
     Route: 048

REACTIONS (29)
  - Oedema peripheral [Unknown]
  - Chromaturia [Unknown]
  - Peripheral coldness [Recovered/Resolved]
  - Graft complication [Unknown]
  - Therapy partial responder [Unknown]
  - Proteinuria [Unknown]
  - Renal impairment [Unknown]
  - Necrosis ischaemic [Recovered/Resolved]
  - Removal of transplanted organ [Unknown]
  - Hypergammaglobulinaemia benign monoclonal [Recovered/Resolved]
  - Cryoglobulinaemia [Unknown]
  - Glomerulonephritis membranoproliferative [Unknown]
  - Blood creatinine increased [Unknown]
  - Palpable purpura [Recovered/Resolved]
  - Renal transplant [Unknown]
  - Biopsy kidney [Unknown]
  - Haematuria [Unknown]
  - Haemodialysis [Unknown]
  - Acute kidney injury [Unknown]
  - Renal haematoma [Unknown]
  - Graft haemorrhage [Unknown]
  - Skin necrosis [Recovered/Resolved]
  - Glomerulosclerosis [Unknown]
  - End stage renal disease [Unknown]
  - Toe amputation [Unknown]
  - Concomitant disease aggravated [Recovered/Resolved]
  - Plasmapheresis [Unknown]
  - Concomitant disease progression [Recovered/Resolved]
  - Biopsy bone marrow [Unknown]

NARRATIVE: CASE EVENT DATE: 2001
